FAERS Safety Report 8963165 (Version 1)
Quarter: 2012Q4

REPORT INFORMATION
  Report Type: 
  Country: CA (occurrence: CA)
  Receive Date: 20121214
  Receipt Date: 20121214
  Transmission Date: 20130627
  Serious: Yes (Other)
  Sender: FDA-Public Use
  Company Number: CA-ELI_LILLY_AND_COMPANY-CA201212001438

PATIENT
  Age: 56 Year
  Sex: Female

DRUGS (1)
  1. HUMULIN NPH [Suspect]
     Dosage: 8 u, each evening
     Dates: start: 20121128, end: 20121204

REACTIONS (3)
  - Dyspnoea [Unknown]
  - Urticaria [Unknown]
  - Oedema peripheral [Unknown]
